FAERS Safety Report 9601312 (Version 1)
Quarter: 2013Q4

REPORT INFORMATION
  Report Type: Report from Study
  Country: HN (occurrence: HN)
  Receive Date: 20131007
  Receipt Date: 20131007
  Transmission Date: 20140711
  Serious: Yes (Death)
  Sender: FDA-Public Use
  Company Number: HN-ROCHE-1285302

PATIENT
  Sex: Female

DRUGS (1)
  1. BONVIVA [Suspect]
     Indication: OSTEOPOROSIS
     Dosage: 23-SEP-2011
     Route: 048
     Dates: start: 20130906

REACTIONS (1)
  - Intracranial aneurysm [Fatal]
